FAERS Safety Report 6853297 (Version 2)
Quarter: 2016Q3

REPORT INFORMATION
  Report Type: Report from Study
  Country: US (occurrence: US)
  Receive Date: 20081215
  Receipt Date: 20160930
  Transmission Date: 20161109
  Serious: Yes (Hospitalization)
  Sender: FDA-Public Use
  Company Number: US-PFIZER INC-2007101719

PATIENT
  Age: 74 Year
  Sex: Male
  Weight: 77 kg

DRUGS (13)
  1. NEXIUM [Concomitant]
     Active Substance: ESOMEPRAZOLE MAGNESIUM
     Dosage: QD
     Route: 048
     Dates: start: 20070919
  2. COSOPT [Concomitant]
     Active Substance: DORZOLAMIDE HYDROCHLORIDE\TIMOLOL MALEATE
     Dosage: 1 DROP,QD
     Route: 047
     Dates: start: 2004
  3. ACETYLSALICYLIC ACID [Concomitant]
     Active Substance: ASPIRIN
     Dosage: QD
     Route: 048
     Dates: start: 200704
  4. PLAVIX [Concomitant]
     Active Substance: CLOPIDOGREL BISULFATE
     Dosage: QD
     Route: 048
     Dates: start: 200704
  5. XALATAN [Concomitant]
     Active Substance: LATANOPROST
     Dosage: 1 DROP,QD
     Route: 047
     Dates: start: 2004
  6. UROXATRAL [Concomitant]
     Active Substance: ALFUZOSIN HYDROCHLORIDE
     Dosage: QD
     Route: 048
     Dates: start: 2005
  7. AMBIEN [Concomitant]
     Active Substance: ZOLPIDEM TARTRATE
     Dosage: QD
     Route: 048
     Dates: start: 2000
  8. CELECOXIB. [Suspect]
     Active Substance: CELECOXIB
     Indication: OSTEOARTHRITIS
     Dosage: UNK
     Route: 048
     Dates: start: 20070919, end: 20071031
  9. PILOCARPINE HYDROCHLORIDE. [Concomitant]
     Active Substance: PILOCARPINE HYDROCHLORIDE
     Route: 047
     Dates: start: 2004
  10. TRAMADOL. [Concomitant]
     Active Substance: TRAMADOL
     Dosage: TID
     Route: 048
     Dates: start: 2006
  11. CELECOXIB. [Suspect]
     Active Substance: CELECOXIB
     Indication: RHEUMATOID ARTHRITIS
  12. SIMVASTATIN. [Concomitant]
     Active Substance: SIMVASTATIN
     Dosage: QD
     Route: 048
     Dates: start: 2006
  13. SENNA [Concomitant]
     Active Substance: SENNA LEAF\SENNOSIDES\SENNOSIDES A AND B
     Dosage: 2 TABS,QD
     Route: 048
     Dates: start: 2000

REACTIONS (2)
  - Cerebrovascular accident [Recovered/Resolved with Sequelae]
  - Seizure [Recovered/Resolved with Sequelae]

NARRATIVE: CASE EVENT DATE: 20071203
